FAERS Safety Report 6211832-1 (Version None)
Quarter: 2009Q2

REPORT INFORMATION
  Report Type: 
  Country: None (occurrence: None)
  Receive Date: 20090602
  Receipt Date: 20090317
  Transmission Date: 20091009
  Serious: Yes (Hospitalization)
  Sender: FDA-Public Use
  Company Number: US-ELI_LILLY_AND_COMPANY-US200903004958

PATIENT
  Age: 55 Year
  Sex: Female

DRUGS (4)
  1. CYMBALTA [Suspect]
     Dosage: 60 MG, UNK
  2. REMERON [Concomitant]
  3. CLONOPIN [Concomitant]
  4. BUSPAR [Concomitant]

REACTIONS (1)
  - CARDIAC FAILURE CONGESTIVE [None]
